FAERS Safety Report 7230908-3 (Version None)
Quarter: 2011Q1

REPORT INFORMATION
  Report Type: 
  Country: None (occurrence: None)
  Receive Date: 20110118
  Receipt Date: 20110106
  Transmission Date: 20110831
  Serious: Yes (Other)
  Sender: FDA-Public Use
  Company Number: US-ROCHE-731127

PATIENT
  Sex: Female
  Weight: 77.1 kg

DRUGS (6)
  1. ACCUTANE [Suspect]
     Route: 065
     Dates: start: 20000101
  2. DESOGESTREL AND ETHINYL ESTRADIOL [Concomitant]
  3. ACCUTANE [Suspect]
     Route: 065
     Dates: start: 19920101, end: 19920701
  4. ACCUTANE [Suspect]
     Route: 065
     Dates: start: 20010101, end: 20010701
  5. ACCUTANE [Suspect]
     Indication: ACNE
     Route: 065
     Dates: start: 19900101
  6. TYLENOL [Concomitant]

REACTIONS (5)
  - DEPRESSION [None]
  - GASTROINTESTINAL INJURY [None]
  - DRUG HYPERSENSITIVITY [None]
  - COLITIS ULCERATIVE [None]
  - COLONIC POLYP [None]
